FAERS Safety Report 10172884 (Version 1)
Quarter: 2014Q2

REPORT INFORMATION
  Report Type: Spontaneous
  Country: GB (occurrence: None)
  Receive Date: 20140513
  Receipt Date: 20140513
  Transmission Date: 20141212
  Serious: Yes (Other)
  Sender: FDA-Public Use
  Company Number: 2014GR_BP003370

PATIENT
  Age: 67 Year
  Sex: Male

DRUGS (2)
  1. FINASTERIDE (FINASTERIDE) [Suspect]
     Indication: PROSTATOMEGALY
  2. TRIMETHOPRIM [Suspect]
     Indication: URINARY TRACT INFECTION

REACTIONS (2)
  - Urinary retention [None]
  - Drug interaction [None]
